FAERS Safety Report 9156030 (Version 2)
Quarter: 2013Q2

REPORT INFORMATION
  Report Type: Spontaneous
  Country: US (occurrence: US)
  Receive Date: 20130311
  Receipt Date: 20130527
  Transmission Date: 20140414
  Serious: No
  Sender: FDA-Public Use
  Company Number: US-009507513-1303USA005060

PATIENT
  Sex: Male
  Weight: 39.2 kg

DRUGS (2)
  1. CLARITIN [Suspect]
     Indication: SEASONAL ALLERGY
     Dosage: 20 MG, ONCE
     Route: 048
  2. CLARITIN [Suspect]
     Dosage: UNK, UNKNOWN
     Route: 048

REACTIONS (1)
  - Overdose [Unknown]
